FAERS Safety Report 5369018-9 (Version None)
Quarter: 2007Q2

REPORT INFORMATION
  Report Type: 
  Country: None (occurrence: None)
  Receive Date: 20070625
  Receipt Date: 20061204
  Transmission Date: 20071010
  Serious: No
  Sender: FDA-Public Use
  Company Number: US-ASTRAZENECA-2006UW27008

PATIENT
  Age: 37 Year
  Sex: Female
  Weight: 90.7 kg

DRUGS (3)
  1. CRESTOR [Suspect]
     Indication: BLOOD CHOLESTEROL INCREASED
     Route: 048
     Dates: start: 20060601
  2. ORAL CONTRACEPTIVES [Concomitant]
  3. BENAPRIL HCTZ [Concomitant]
     Indication: HYPERTENSION

REACTIONS (1)
  - WEIGHT DECREASED [None]
